FAERS Safety Report 6154485-3 (Version None)
Quarter: 2009Q2

REPORT INFORMATION
  Report Type: 
  Country: None (occurrence: None)
  Receive Date: 20090414
  Receipt Date: 20090407
  Transmission Date: 20091009
  Serious: Yes (Hospitalization, Other)
  Sender: FDA-Public Use
  Company Number: US-ELI_LILLY_AND_COMPANY-US200904001481

PATIENT
  Sex: Male

DRUGS (10)
  1. HUMULIN R [Suspect]
     Indication: TYPE 1 DIABETES MELLITUS
     Dates: start: 19990101, end: 20081101
  2. HUMULIN R [Suspect]
     Dates: start: 20090401
  3. GABAPENTIN [Concomitant]
  4. ASPIRIN [Concomitant]
  5. PLAVIX [Concomitant]
  6. POTASSIUM CHLORIDE [Concomitant]
  7. LISINOPRIL [Concomitant]
  8. LOVAZA [Concomitant]
  9. PAXIL [Concomitant]
  10. LEVOTHYROXINE SODIUM [Concomitant]

REACTIONS (9)
  - BLINDNESS [None]
  - BLINDNESS TRANSIENT [None]
  - BLOOD GLUCOSE INCREASED [None]
  - CEREBROVASCULAR ACCIDENT [None]
  - DIABETIC KETOACIDOSIS [None]
  - DRUG INEFFECTIVE [None]
  - ENCEPHALOPATHY [None]
  - HEMIPARESIS [None]
  - THERAPEUTIC RESPONSE DECREASED [None]
